FAERS Safety Report 9940676 (Version 3)
Quarter: 2014Q4

REPORT INFORMATION
  Report Type: Spontaneous
  Country: US (occurrence: US)
  Receive Date: 20140303
  Receipt Date: 20141021
  Transmission Date: 20150529
  Serious: Yes (Life-Threatening, Congenital Anomaly, Other)
  Sender: FDA-Public Use
  Company Number: US-ELI_LILLY_AND_COMPANY-US201402008673

PATIENT
  Age: 0 Day

DRUGS (8)
  1. VISTARIL                           /00058403/ [Concomitant]
     Dosage: 50 MG, PRN
  2. ZITHROMAX [Concomitant]
     Active Substance: AZITHROMYCIN DIHYDRATE
     Indication: PHARYNGITIS
     Dosage: 500 MG, SINGLE
     Dates: start: 20070522, end: 20070522
  3. ZITHROMAX [Concomitant]
     Active Substance: AZITHROMYCIN DIHYDRATE
     Dosage: 250 MG, QD
     Dates: start: 20070523, end: 20070526
  4. NASONEX [Concomitant]
     Active Substance: MOMETASONE FUROATE
     Dosage: UNK
     Route: 045
  5. ALLEGRA [Concomitant]
     Active Substance: FEXOFENADINE HYDROCHLORIDE
     Dosage: 180 MG, UNK
     Route: 048
  6. ORTHO TRI CYCLEN LO [Concomitant]
     Active Substance: ETHINYL ESTRADIOL\NORGESTIMATE
     Dosage: 0.025 MG, QD
     Route: 048
     Dates: start: 20070219
  7. PROZAC [Suspect]
     Active Substance: FLUOXETINE HYDROCHLORIDE
     Indication: PRODUCT USED FOR UNKNOWN INDICATION
     Dosage: 1 DF, UNKNOWN
     Route: 064
  8. ANUSOL HC [Concomitant]
     Active Substance: HYDROCORTISONE
     Dosage: 1 DF, BID
     Route: 061

REACTIONS (9)
  - Right ventricular hypertrophy [Recovered/Resolved]
  - Foetal distress syndrome [Recovered/Resolved]
  - Umbilical cord around neck [Recovered/Resolved]
  - Tricuspid valve incompetence [Unknown]
  - Atrial septal defect [Recovered/Resolved]
  - Meconium stain [Recovered/Resolved]
  - Pericardial effusion [Unknown]
  - Foetal exposure during pregnancy [Unknown]
  - Exposure during breast feeding [Unknown]

NARRATIVE: CASE EVENT DATE: 20080204
